FAERS Safety Report 5390824-9 (Version None)
Quarter: 2007Q3

REPORT INFORMATION
  Report Type: 
  Country: None (occurrence: None)
  Receive Date: 20070716
  Receipt Date: 20070706
  Transmission Date: 20080115
  Serious: Yes (Other)
  Sender: FDA-Public Use
  Company Number: 2007AL002729

PATIENT
  Age: 67 Year
  Sex: Male

DRUGS (10)
  1. FLUOXETINE [Suspect]
     Indication: DEPRESSION
     Dosage: 20 MG; BID
  2. DILTIAZEM [Concomitant]
  3. SIMVASTATIN [Concomitant]
  4. PERINDOPRIL [Concomitant]
  5. GLICLAZIDE [Concomitant]
  6. METFORMIN HCL [Concomitant]
  7. ACETYLSALICYLIC ACID SRT [Concomitant]
  8. ROSIGLITAZONE [Concomitant]
  9. RIMONABANT [Concomitant]
  10. DIHYDROCODEINE BITARTRATE INJ [Concomitant]

REACTIONS (10)
  - AGITATION [None]
  - ANGER [None]
  - CONFUSIONAL STATE [None]
  - DELUSION [None]
  - DRUG WITHDRAWAL SYNDROME [None]
  - FEELING JITTERY [None]
  - HALLUCINATIONS, MIXED [None]
  - IRRITABILITY [None]
  - PSYCHOTIC DISORDER [None]
  - TREATMENT NONCOMPLIANCE [None]
